FAERS Safety Report 20204004 (Version 1)
Quarter: 2021Q4

REPORT INFORMATION
  Report Type: Spontaneous
  Country: TR (occurrence: TR)
  Receive Date: 20211220
  Receipt Date: 20211220
  Transmission Date: 20220304
  Serious: Yes (Other)
  Sender: FDA-Public Use
  Company Number: TR-AMGEN-TURSP2021199404

PATIENT

DRUGS (3)
  1. FILGRASTIM [Suspect]
     Active Substance: FILGRASTIM
     Indication: Autologous haematopoietic stem cell transplant
     Dosage: 10 MILLIGRAM/KILOGRAM, QD
     Route: 058
  2. CYCLOPHOSPHAMIDE [Concomitant]
     Active Substance: CYCLOPHOSPHAMIDE
     Indication: Plasma cell myeloma
     Dosage: 4 GRAM PER SQUARE METRE
  3. MESNA [Concomitant]
     Active Substance: MESNA
     Indication: Plasma cell myeloma
     Dosage: 4 GRAM PER SQUARE METRE

REACTIONS (1)
  - Engraft failure [Unknown]
